FAERS Safety Report 4474641-X (Version None)
Quarter: 2004Q4

REPORT INFORMATION
  Report Type: 
  Country: None (occurrence: None)
  Receive Date: 20041012
  Receipt Date: 20040928
  Transmission Date: 20050328
  Serious: Yes (Other)
  Sender: FDA-Public Use
  Company Number: 2004236540AU

PATIENT
  Age: 50 Year
  Sex: Female

DRUGS (2)
  1. CELEBREX [Suspect]
     Indication: PAIN
     Dosage: 200 MG,
     Dates: start: 20040919
  2. NAPROSYN [Concomitant]

REACTIONS (4)
  - LOCAL SWELLING [None]
  - PRURITUS [None]
  - SUBCUTANEOUS NODULE [None]
  - SWELLING FACE [None]
